FAERS Safety Report 11052938 (Version 1)
Quarter: 2015Q2

REPORT INFORMATION
  Report Type: Spontaneous
  Country: US (occurrence: US)
  Receive Date: 20150421
  Receipt Date: 20150421
  Transmission Date: 20150821
  Serious: Yes (Other)
  Sender: FDA-Public Use
  Company Number: US-ASTRAZENECA-2015SE35890

PATIENT
  Age: 561 Month
  Sex: Male
  Weight: 90.3 kg

DRUGS (5)
  1. SEROQUEL XR [Suspect]
     Active Substance: QUETIAPINE FUMARATE
     Indication: BIPOLAR DISORDER
     Route: 048
     Dates: end: 201504
  2. ALLEGRA [Concomitant]
     Active Substance: FEXOFENADINE HYDROCHLORIDE
  3. ARTANE TRIHEXYPHEN [Concomitant]
     Indication: MUSCLE RELAXANT THERAPY
  4. SEROQUEL XR [Suspect]
     Active Substance: QUETIAPINE FUMARATE
     Indication: DEPRESSION
     Route: 048
     Dates: end: 201504
  5. ARTANE TRIHEXYPHEN [Concomitant]
     Indication: MUSCLE RELAXANT THERAPY

REACTIONS (17)
  - Feeling abnormal [Recovered/Resolved]
  - Restless legs syndrome [Unknown]
  - Psychomotor hyperactivity [Unknown]
  - Adverse drug reaction [Unknown]
  - Mania [Unknown]
  - Insomnia [Unknown]
  - Therapy cessation [Unknown]
  - Drug ineffective [Unknown]
  - Drug intolerance [Unknown]
  - Sinus disorder [Unknown]
  - Road traffic accident [Unknown]
  - Anger [Unknown]
  - Headache [Unknown]
  - Cardiovascular disorder [Unknown]
  - Muscle spasms [Unknown]
  - Nausea [Unknown]
  - Loss of consciousness [Unknown]

NARRATIVE: CASE EVENT DATE: 201504
